FAERS Safety Report 19302807 (Version 1)
Quarter: 2021Q2

REPORT INFORMATION
  Report Type: Spontaneous
  Country: US (occurrence: US)
  Receive Date: 20210525
  Receipt Date: 20210525
  Transmission Date: 20210717
  Serious: No
  Sender: FDA-Public Use
  Company Number: US-GLAUKOS-AVE-2020-0203-AE

PATIENT
  Sex: Male

DRUGS (2)
  1. AVEDRO CROSS?LINKING PRODUCT(S), UNSPECIFIED [Suspect]
     Active Substance: RIBOFLAVIN 5^-PHOSPHATE SODIUM
     Indication: KERATOCONUS
     Dates: start: 202006, end: 202006
  2. [BANDAGE CONTACT] LENS [Suspect]
     Active Substance: DEVICE
     Indication: PRODUCT USED FOR UNKNOWN INDICATION
     Dates: start: 202006

REACTIONS (3)
  - Visual impairment [Not Recovered/Not Resolved]
  - Contact lens therapy [Not Recovered/Not Resolved]
  - Visual acuity reduced [Not Recovered/Not Resolved]
